FAERS Safety Report 25350576 (Version 1)
Quarter: 2025Q2

REPORT INFORMATION
  Report Type: Spontaneous
  Country: US (occurrence: US)
  Receive Date: 20250523
  Receipt Date: 20250523
  Transmission Date: 20250716
  Serious: Yes (Other)
  Sender: ABBVIE
  Company Number: US-ABBVIE-6287030

PATIENT
  Age: 87 Year
  Sex: Female

DRUGS (2)
  1. ACTONEL [Suspect]
     Active Substance: RISEDRONATE SODIUM
     Indication: Bone density increased
     Route: 048
     Dates: start: 2001, end: 2015
  2. FOSAMAX [Suspect]
     Active Substance: ALENDRONATE SODIUM
     Indication: Product used for unknown indication
     Route: 065
     Dates: start: 1998

REACTIONS (7)
  - Medical device implantation [Unknown]
  - Drug ineffective [Unknown]
  - Product residue present [Not Recovered/Not Resolved]
  - Posture abnormal [Unknown]
  - Haemoglobin decreased [Unknown]
  - Fall [Unknown]
  - Gastrooesophageal reflux disease [Unknown]

NARRATIVE: CASE EVENT DATE: 20230101
